FAERS Safety Report 8496843-8 (Version None)
Quarter: 2012Q3

REPORT INFORMATION
  Report Type: 
  Country: None (occurrence: None)
  Receive Date: 20120709
  Receipt Date: 20120704
  Transmission Date: 20120928
  Serious: Yes (Death, Hospitalization)
  Sender: FDA-Public Use
  Company Number: FR-ALLERGAN-1209285US

PATIENT
  Age: 67 Year
  Sex: Male

DRUGS (11)
  1. DYSPORT [Suspect]
     Indication: MUSCLE SPASMS
     Dosage: 150 UNITS, SINGLE
     Dates: start: 20120330, end: 20120330
  2. FORLAX [Concomitant]
  3. AMANTADINE HCL [Concomitant]
  4. MIANSERINE [Concomitant]
     Dosage: 2 DF, QD
  5. BOTOX [Suspect]
     Indication: FACIAL SPASM
     Dosage: 15 UNITS, SINGLE
     Dates: start: 20120330, end: 20120330
  6. TROSPIUM CHLORIDE [Concomitant]
     Dosage: 2 DF, QD
  7. MODOPAR GEL LEVODOPA [Concomitant]
  8. PRAMIPEXOLE DIHYDROCHLORIDE [Concomitant]
  9. DIHYDROERGOTAMINE MESYLATE [Concomitant]
     Dosage: 2 DF, QD
  10. MADOPAR DISPERSIBL [Concomitant]
     Dosage: UNK
  11. THIOCOLCHICOSIDE [Concomitant]
     Dosage: 3 DF, QD

REACTIONS (6)
  - RESPIRATORY DISORDER [None]
  - MUSCULAR WEAKNESS [None]
  - DYSPHAGIA [None]
  - DYSPHONIA [None]
  - DIPLOPIA [None]
  - HEAD INJURY [None]
